FAERS Safety Report 24239617 (Version 1)
Quarter: 2024Q3

REPORT INFORMATION
  Report Type: Spontaneous
  Country: US (occurrence: US)
  Receive Date: 20240822
  Receipt Date: 20240822
  Transmission Date: 20241017
  Serious: Yes (Hospitalization)
  Sender: AVADEL CNS PHARMA
  Company Number: US-AVADEL CNS PHARMACEUTICALS, LLC-2024AVA00775

PATIENT
  Age: 31 Year
  Sex: Female
  Weight: 71.701 kg

DRUGS (7)
  1. LUMRYZ [Suspect]
     Active Substance: SODIUM OXYBATE
     Indication: Narcolepsy
     Dosage: 6 G
     Route: 048
     Dates: end: 202404
  2. LUMRYZ [Suspect]
     Active Substance: SODIUM OXYBATE
     Indication: Narcolepsy
     Dosage: 7.5 G, ONCE NIGHTLY AT BEDTIME
     Route: 048
     Dates: start: 202404, end: 2024
  3. LUMRYZ [Suspect]
     Active Substance: SODIUM OXYBATE
     Dosage: 7.5 G, ONCE NIGHTLY AT BEDTIME
     Route: 048
     Dates: start: 2024, end: 20240519
  4. TRAZODONE HCL [Concomitant]
     Active Substance: TRAZODONE HYDROCHLORIDE
  5. MIRENA [Concomitant]
     Active Substance: LEVONORGESTREL
  6. BUPROPION HYDROCHLORIDE XL [Concomitant]
     Active Substance: BUPROPION HYDROCHLORIDE
  7. VITAMINS NOS [Concomitant]
     Active Substance: VITAMINS
     Dosage: UNK, DAILY

REACTIONS (7)
  - Vomiting [Recovered/Resolved]
  - Nausea [Recovered/Resolved]
  - Helicobacter infection [Unknown]
  - Poor quality sleep [Unknown]
  - Gastrointestinal disorder [Recovered/Resolved]
  - Somnolence [Unknown]
  - Intentional dose omission [Recovered/Resolved]

NARRATIVE: CASE EVENT DATE: 20240401
